FAERS Safety Report 8971002 (Version 1)
Quarter: 2012Q4

REPORT INFORMATION
  Report Type: 
  Country: US (occurrence: US)
  Receive Date: 20121218
  Receipt Date: 20121218
  Transmission Date: 20130627
  Serious: No
  Sender: FDA-Public Use
  Company Number: US-BRISTOL-MYERS SQUIBB COMPANY-17023995

PATIENT
  Age: 59 Year
  Sex: Male
  Weight: 77.1 kg

DRUGS (3)
  1. ABILIFY [Suspect]
     Indication: DEPRESSION
     Dosage: Inter-of Aug12 to early Sep12 for a week
Instead of Abilify 2mg the pharmacy has given Abilify 20mg
  2. VIIBRYD [Suspect]
     Indication: DEPRESSION
  3. CLONAZEPAM [Concomitant]
     Indication: ANXIETY

REACTIONS (6)
  - Anxiety [Unknown]
  - Feeling jittery [Unknown]
  - Nervousness [Unknown]
  - Palpitations [Unknown]
  - Asthenia [Unknown]
  - Drug dispensing error [Unknown]
